FAERS Safety Report 7368510-5 (Version None)
Quarter: 2011Q1

REPORT INFORMATION
  Report Type: 
  Country: None (occurrence: None)
  Receive Date: 20110308
  Receipt Date: 20110228
  Transmission Date: 20110831
  Serious: Yes (Hospitalization, Other)
  Sender: FDA-Public Use
  Company Number: 2011SP007106

PATIENT
  Age: 34 Year
  Sex: Female

DRUGS (3)
  1. SYNARELA (CON.) [Concomitant]
  2. PUREGON (FOLLITROPIN BETA /01348901/) [Suspect]
     Indication: IN VITRO FERTILISATION
     Dosage: (PRN) (PRN)
     Dates: start: 20100101
  3. PUREGON (FOLLITROPIN BETA /01348901/) [Suspect]
     Indication: IN VITRO FERTILISATION
     Dosage: (PRN) (PRN)
     Dates: start: 20100801

REACTIONS (9)
  - SKIN DISCOLOURATION [None]
  - CYANOSIS [None]
  - PERIPHERAL VASCULAR DISORDER [None]
  - SKIN ULCER [None]
  - SKIN REACTION [None]
  - SKIN FISSURES [None]
  - MUSCULOSKELETAL STIFFNESS [None]
  - FLUSHING [None]
  - PAIN OF SKIN [None]
